FAERS Safety Report 17476832 (Version 1)
Quarter: 2020Q1

REPORT INFORMATION
  Report Type: Report from Study
  Country: CA (occurrence: CA)
  Receive Date: 20200228
  Receipt Date: 20200228
  Transmission Date: 20200409
  Serious: Yes (Other)
  Sender: FDA-Public Use
  Company Number: CA-JNJFOC-20190445875

PATIENT
  Age: 51 Year
  Sex: Female
  Weight: 71.3 kg

DRUGS (2)
  1. STELARA [Suspect]
     Active Substance: USTEKINUMAB
     Indication: CROHN^S DISEASE
     Route: 058
     Dates: start: 20190104, end: 20190625
  2. STELARA [Suspect]
     Active Substance: USTEKINUMAB
     Route: 058

REACTIONS (8)
  - Crohn^s disease [Not Recovered/Not Resolved]
  - Off label use [Unknown]
  - Eye inflammation [Unknown]
  - Influenza [Unknown]
  - Drug ineffective [Unknown]
  - Device leakage [Unknown]
  - Purulent discharge [Unknown]
  - Product use in unapproved indication [Unknown]

NARRATIVE: CASE EVENT DATE: 20190104
